FAERS Safety Report 9088755 (Version 1)
Quarter: 2013Q1

REPORT INFORMATION
  Report Type: Spontaneous
  Country: CA (occurrence: CA)
  Receive Date: 20130201
  Receipt Date: 20130201
  Transmission Date: 20140127
  Serious: Yes (Other)
  Sender: FDA-Public Use
  Company Number: PHHY2012CA004580

PATIENT
  Age: 71 Year
  Sex: Female

DRUGS (2)
  1. ACLASTA [Suspect]
     Indication: OSTEOPOROSIS
     Dosage: UNK UKN, UNK
     Route: 042
     Dates: start: 20110218
  2. ACLASTA [Suspect]
     Dosage: UNK UKN, UNK
     Route: 042
     Dates: start: 20120330

REACTIONS (7)
  - Upper limb fracture [Unknown]
  - Spinal fracture [Unknown]
  - Rib fracture [Unknown]
  - Head injury [Unknown]
  - Limb injury [Unknown]
  - Fall [Unknown]
  - Glomerular filtration rate decreased [Unknown]
